FAERS Safety Report 6152317-0 (Version None)
Quarter: 2009Q2

REPORT INFORMATION
  Report Type: 
  Country: None (occurrence: None)
  Receive Date: 20090413
  Receipt Date: 20070425
  Transmission Date: 20091009
  Serious: Yes (Other)
  Sender: FDA-Public Use
  Company Number: US-ASTRAZENECA-2006UW08222

PATIENT
  Age: 16799 Day
  Sex: Male
  Weight: 102.1 kg

DRUGS (30)
  1. SEROQUEL [Suspect]
     Dosage: 25 - 400 MG
     Route: 048
     Dates: start: 19990428
  2. ABILIFY [Concomitant]
     Route: 048
  3. CLOZARIL [Concomitant]
     Route: 048
  4. GEODON [Concomitant]
     Route: 048
  5. HALDOL [Concomitant]
  6. NAVANE [Concomitant]
     Route: 048
  7. RISPERDAL [Concomitant]
     Route: 048
  8. STELAZINE [Concomitant]
     Route: 048
  9. THORAZINE [Concomitant]
  10. ZYPREXA [Concomitant]
     Route: 048
     Dates: start: 20000701, end: 20010101
  11. LITHIUM CARBONATE [Concomitant]
  12. MESALAMINE [Concomitant]
  13. LOVASTATIN [Concomitant]
  14. DIVALPROEX SODIUM [Concomitant]
  15. PAXIL [Concomitant]
  16. INSULIN [Concomitant]
  17. LISINOPRIL [Concomitant]
  18. AVANDIA [Concomitant]
  19. SILDENAFIL CITRATE [Concomitant]
  20. VALIUM [Concomitant]
  21. LODINE [Concomitant]
  22. GEMFIBROZIL [Concomitant]
  23. AMBIEN [Concomitant]
  24. ROBAXIN [Concomitant]
  25. WELLBUTRIN [Concomitant]
  26. SERZONE [Concomitant]
  27. REMERON [Concomitant]
  28. COGENTIN [Concomitant]
  29. SIMVA [Concomitant]
  30. GLYBURIDE [Concomitant]

REACTIONS (21)
  - ASTIGMATISM [None]
  - BACK PAIN [None]
  - BIPOLAR DISORDER [None]
  - BURSITIS [None]
  - CHRONIC SINUSITIS [None]
  - CYST [None]
  - DEPRESSION [None]
  - DIABETES MELLITUS [None]
  - DIABETIC RETINOPATHY [None]
  - DRUG ABUSE [None]
  - HALLUCINATION, VISUAL [None]
  - INTERMITTENT EXPLOSIVE DISORDER [None]
  - OSTEOARTHRITIS [None]
  - PILONIDAL CYST [None]
  - PRESBYOPIA [None]
  - RADICULOPATHY [None]
  - SCHIZOAFFECTIVE DISORDER [None]
  - SUBCUTANEOUS ABSCESS [None]
  - SUICIDAL IDEATION [None]
  - TARDIVE DYSKINESIA [None]
  - TYPE 2 DIABETES MELLITUS [None]
